FAERS Safety Report 8016260-4 (Version None)
Quarter: 2011Q4

REPORT INFORMATION
  Report Type: 
  Country: None (occurrence: None)
  Receive Date: 20111230
  Receipt Date: 20111227
  Transmission Date: 20120403
  Serious: Yes (Hospitalization, Other)
  Sender: FDA-Public Use
  Company Number: US-MERCK-1110USA00467

PATIENT
  Age: 47 Year
  Sex: Female

DRUGS (2)
  1. FOSAMAX [Suspect]
     Indication: OSTEOPENIA
     Route: 048
     Dates: end: 20060901
  2. FOSAMAX [Suspect]
     Indication: OSTEOPOROSIS PROPHYLAXIS
     Route: 048
     Dates: end: 20060901

REACTIONS (10)
  - RIB FRACTURE [None]
  - TOOTH DISORDER [None]
  - FEMORAL NECK FRACTURE [None]
  - FALL [None]
  - ARTHRALGIA [None]
  - OSTEOARTHRITIS [None]
  - MUSCULOSKELETAL PAIN [None]
  - BURSITIS [None]
  - UTERINE DISORDER [None]
  - EPICONDYLITIS [None]
